FAERS Safety Report 4563976-8 (Version None)
Quarter: 2005Q1

REPORT INFORMATION
  Report Type: 
  Country: None (occurrence: None)
  Receive Date: 20050127
  Receipt Date: 20050121
  Transmission Date: 20050727
  Serious: Yes (Hospitalization)
  Sender: FDA-Public Use
  Company Number: 05-01-0095

PATIENT
  Age: 32 Year
  Sex: Male

DRUGS (1)
  1. CLOZAPINE [Suspect]
     Indication: SCHIZOTYPAL PERSONALITY DISORDER
     Dosage: 200-400MG QD ORAL
     Route: 048
     Dates: start: 19980401, end: 20041201

REACTIONS (2)
  - APPENDICECTOMY [None]
  - COLECTOMY PARTIAL [None]
